FAERS Safety Report 16174710 (Version 1)
Quarter: 2019Q2

REPORT INFORMATION
  Report Type: Spontaneous
  Country: US (occurrence: US)
  Receive Date: 20190409
  Receipt Date: 20190409
  Transmission Date: 20190711
  Serious: No
  Sender: FDA-Public Use
  Company Number: US-BAYER-2019-057256

PATIENT
  Sex: Female

DRUGS (2)
  1. LOTRIMIN ANTIFUNGAL (CLOTRIMAZOLE) [Suspect]
     Active Substance: CLOTRIMAZOLE
     Indication: THERAPEUTIC SKIN CARE TOPICAL
     Dosage: UNK
     Route: 061
  2. LOTRIMIN ANTIFUNGAL (CLOTRIMAZOLE) [Suspect]
     Active Substance: CLOTRIMAZOLE
     Indication: FUNGAL INFECTION

REACTIONS (2)
  - Product administered at inappropriate site [Unknown]
  - Product use in unapproved indication [Unknown]
